FAERS Safety Report 6554458-2 (Version None)
Quarter: 2010Q1

REPORT INFORMATION
  Report Type: 
  Country: None (occurrence: None)
  Receive Date: 20100125
  Receipt Date: 20100125
  Transmission Date: 20100710
  Serious: Yes (Hospitalization)
  Sender: FDA-Public Use
  Company Number: None

PATIENT
  Age: 28 Year
  Sex: Female

DRUGS (1)
  1. PYRANTEL PAMOATE 144MG/ ML UNKNOWN [Suspect]
     Indication: HELMINTHIC INFECTION
     Dosage: THREE TEASPOONS -15 ML- ONCE PO ONE DOSE
     Route: 048
     Dates: start: 20100111, end: 20100111

REACTIONS (3)
  - ASTHENIA [None]
  - GAZE PALSY [None]
  - NEUROMYOPATHY [None]
